FAERS Safety Report 24318134 (Version 1)
Quarter: 2024Q3

REPORT INFORMATION
  Report Type: Spontaneous
  Country: US (occurrence: US)
  Receive Date: 20240913
  Receipt Date: 20240913
  Transmission Date: 20241016
  Serious: Yes (Other)
  Sender: BRISTOL MYERS SQUIBB
  Company Number: US-BRISTOL-MYERS SQUIBB COMPANY-2024-144764

PATIENT
  Age: 85 Year
  Sex: Female
  Weight: 57.61 kg

DRUGS (4)
  1. ELIQUIS [Suspect]
     Active Substance: APIXABAN
     Indication: Thrombosis
     Route: 048
  2. CLIMARA [Concomitant]
     Active Substance: ESTRADIOL
     Indication: Hormone replacement therapy
     Dosage: CLIMARA PATCH
  3. VITAMIN D3 [Concomitant]
     Active Substance: CHOLECALCIFEROL
     Indication: Cardiac disorder
  4. VITAMINS NOS [Concomitant]
     Active Substance: VITAMINS
     Indication: Cardiac disorder

REACTIONS (5)
  - Vein disorder [Unknown]
  - Haematuria [Recovering/Resolving]
  - Cystitis [Unknown]
  - Petechiae [Unknown]
  - Off label use [Unknown]

NARRATIVE: CASE EVENT DATE: 20240101
